FAERS Safety Report 10171330 (Version 1)
Quarter: 2014Q2

REPORT INFORMATION
  Report Type: Spontaneous
  Country: BR (occurrence: BR)
  Receive Date: 20140514
  Receipt Date: 20140514
  Transmission Date: 20141212
  Serious: Yes (Hospitalization)
  Sender: FDA-Public Use
  Company Number: BR-DRREDDYS-GPV/BRA/14/0040169

PATIENT
  Age: 13 Year
  Sex: Female

DRUGS (3)
  1. RISPERIDONE 3MG TABLET [Suspect]
     Indication: PRODUCT USED FOR UNKNOWN INDICATION
     Route: 048
  2. PAXIL [Suspect]
     Indication: PRODUCT USED FOR UNKNOWN INDICATION
     Route: 048
  3. ESCITALOPRAM [Suspect]
     Indication: PRODUCT USED FOR UNKNOWN INDICATION
     Route: 048
     Dates: start: 20140429

REACTIONS (5)
  - Suicidal ideation [Unknown]
  - Poisoning [Unknown]
  - Overdose [Unknown]
  - Intentional overdose [None]
  - Suicide attempt [None]
